FAERS Safety Report 7983025-9 (Version None)
Quarter: 2011Q4

REPORT INFORMATION
  Report Type: 
  Country: None (occurrence: None)
  Receive Date: 20111215
  Receipt Date: 20111205
  Transmission Date: 20120403
  Serious: Yes (Other)
  Sender: FDA-Public Use
  Company Number: CA-JNJFOC-20111205010

PATIENT
  Sex: Male
  Weight: 60 kg

DRUGS (3)
  1. PLAQUENIL [Concomitant]
     Route: 065
  2. REMICADE [Suspect]
     Indication: TENDONITIS
     Route: 042
     Dates: start: 20080521
  3. ELAVIL [Concomitant]
     Route: 065

REACTIONS (1)
  - GASTRIC ULCER [None]
